FAERS Safety Report 23260132 (Version 2)
Quarter: 2023Q4

REPORT INFORMATION
  Report Type: Spontaneous
  Country: JP (occurrence: JP)
  Receive Date: 20231204
  Receipt Date: 20231215
  Transmission Date: 20240109
  Serious: Yes (Other)
  Sender: FDA-Public Use
  Company Number: JP-002147023-NVSJ2023JP017188

PATIENT
  Age: 51 Year
  Sex: Female

DRUGS (1)
  1. FINGOLIMOD HYDROCHLORIDE [Suspect]
     Active Substance: FINGOLIMOD HYDROCHLORIDE
     Indication: Secondary progressive multiple sclerosis
     Dosage: UNK
     Route: 048

REACTIONS (2)
  - Multiple sclerosis [Unknown]
  - Mental impairment [Unknown]
